FAERS Safety Report 6192320-8 (Version None)
Quarter: 2009Q2

REPORT INFORMATION
  Report Type: 
  Country: None (occurrence: None)
  Receive Date: 20090515
  Receipt Date: 20090507
  Transmission Date: 20091009
  Serious: Yes (Life-Threatening)
  Sender: FDA-Public Use
  Company Number: PT-MERCK-0905PRT00002

PATIENT
  Sex: Male

DRUGS (3)
  1. CANCIDAS [Suspect]
     Indication: FUNGAL INFECTION
     Route: 041
     Dates: start: 20090505
  2. SIMVASTATIN [Concomitant]
     Route: 048
     Dates: start: 20090407, end: 20090507
  3. CLARITHROMYCIN [Concomitant]
     Route: 065

REACTIONS (3)
  - BLOOD CREATINE PHOSPHOKINASE INCREASED [None]
  - MYOGLOBIN URINE PRESENT [None]
  - RENAL FAILURE ACUTE [None]
